FAERS Safety Report 18897967 (Version 1)
Quarter: 2021Q1

REPORT INFORMATION
  Report Type: Spontaneous
  Country: US (occurrence: US)
  Receive Date: 20210212
  Receipt Date: 20210212
  Transmission Date: 20210420
  Serious: No
  Sender: FDA-Public Use
  Company Number: None

PATIENT
  Age: 28 Year
  Sex: Female
  Weight: 58.97 kg

DRUGS (5)
  1. MIRENA [Suspect]
     Active Substance: LEVONORGESTREL
  2. ZINC. [Concomitant]
     Active Substance: ZINC
  3. FISH OIL [Concomitant]
     Active Substance: FISH OIL
  4. VITAMIN C [Concomitant]
     Active Substance: ASCORBIC ACID
  5. VITAMIN D [Concomitant]
     Active Substance: VITAMIN D NOS

REACTIONS (11)
  - Autoimmune disorder [None]
  - Antinuclear antibody positive [None]
  - Syncope [None]
  - Panic attack [None]
  - Arthralgia [None]
  - Ovarian cyst [None]
  - Alopecia [None]
  - Chest pain [None]
  - Complication associated with device [None]
  - Inflammation [None]
  - Dyspnoea [None]
